FAERS Safety Report 23429895 (Version 2)
Quarter: 2025Q1

REPORT INFORMATION
  Report Type: Report from Study
  Country: CO (occurrence: CO)
  Receive Date: 20240122
  Receipt Date: 20250225
  Transmission Date: 20250409
  Serious: Yes (Hospitalization)
  Sender: BIOGEN
  Company Number: CO-BIOGEN-2023BI01225159

PATIENT
  Sex: Female
  Weight: 47 kg

DRUGS (3)
  1. TYSABRI [Suspect]
     Active Substance: NATALIZUMAB
     Indication: Multiple sclerosis
     Route: 050
     Dates: start: 20200930, end: 202211
  2. TYSABRI [Suspect]
     Active Substance: NATALIZUMAB
     Route: 050
     Dates: start: 20230908, end: 20250206
  3. TYSABRI [Suspect]
     Active Substance: NATALIZUMAB
     Route: 050
     Dates: start: 20250206

REACTIONS (5)
  - Vision blurred [Recovered/Resolved]
  - Diplopia [Recovered/Resolved]
  - Hypothyroidism [Not Recovered/Not Resolved]
  - Prescribed underdose [Not Recovered/Not Resolved]
  - Demyelination [Not Recovered/Not Resolved]

NARRATIVE: CASE EVENT DATE: 20200101
